FAERS Safety Report 14526824 (Version 1)
Quarter: 2018Q1

REPORT INFORMATION
  Report Type: Spontaneous
  Country: US (occurrence: US)
  Receive Date: 20180212
  Receipt Date: 20180212
  Transmission Date: 20180509
  Serious: Yes (Hospitalization)
  Sender: FDA-Public Use
  Company Number: None

PATIENT
  Age: 72 Year
  Sex: Male

DRUGS (18)
  1. ALFUZOSIN [Concomitant]
     Active Substance: ALFUZOSIN
  2. COENZYME [Concomitant]
     Active Substance: UBIDECARENONE
  3. LOVENOX [Concomitant]
     Active Substance: ENOXAPARIN SODIUM
  4. OXYCODONE AND ACETAMINOPHEN [Concomitant]
     Active Substance: ACETAMINOPHEN\OXYCODONE HYDROCHLORIDE
  5. VOTRIENT [Suspect]
     Active Substance: PAZOPANIB HYDROCHLORIDE
     Indication: SOFT TISSUE SARCOMA
     Route: 048
     Dates: start: 20171215
  6. BUPRENORPHIN [Concomitant]
     Active Substance: BUPRENORPHINE
  7. AMLODIPINE [Concomitant]
     Active Substance: AMLODIPINE BESYLATE
  8. ATENOLOL. [Concomitant]
     Active Substance: ATENOLOL
  9. GARLIC. [Concomitant]
     Active Substance: GARLIC
  10. METFORMIN [Concomitant]
     Active Substance: METFORMIN HYDROCHLORIDE
  11. OXYBUTYNIN. [Concomitant]
     Active Substance: OXYBUTYNIN CHLORIDE
  12. VICTOZA [Concomitant]
     Active Substance: LIRAGLUTIDE
  13. AMARYL [Concomitant]
     Active Substance: GLIMEPIRIDE
  14. PROSCAR [Concomitant]
     Active Substance: FINASTERIDE
  15. CIALIS [Concomitant]
     Active Substance: TADALAFIL
  16. LIPITOR [Concomitant]
     Active Substance: ATORVASTATIN CALCIUM
  17. OMEGA 3 [Concomitant]
     Active Substance: OMEGA-3 FATTY ACIDS
  18. VITA-PLUS E [Concomitant]

REACTIONS (1)
  - Blood count abnormal [None]

NARRATIVE: CASE EVENT DATE: 20180209
